FAERS Safety Report 8644061 (Version 3)
Quarter: 2013Q2

REPORT INFORMATION
  Report Type: Spontaneous
  Country: LB (occurrence: LB)
  Receive Date: 20120629
  Receipt Date: 20130628
  Transmission Date: 20140414
  Serious: Yes (Death)
  Sender: FDA-Public Use
  Company Number: LB-CELGENEUS-093-21880-12062920

PATIENT
  Age: 54 Year
  Sex: Male

DRUGS (4)
  1. REVLIMID [Suspect]
     Indication: PRODUCT USED FOR UNKNOWN INDICATION
     Dosage: 10 MILLIGRAM
     Route: 048
     Dates: start: 20120404
  2. THALIDOMIDE [Suspect]
     Indication: PLASMA CELL MYELOMA
     Dosage: 100 MILLIGRAM
     Route: 048
     Dates: start: 20120111, end: 20120125
  3. VELCADE [Suspect]
     Indication: PLASMA CELL MYELOMA
     Route: 041
     Dates: start: 201201, end: 201201
  4. DEXAMETHASONE [Suspect]
     Indication: PLASMA CELL MYELOMA
     Dosage: 4 DOSAGE FORMS
     Route: 048
     Dates: start: 201201, end: 201201

REACTIONS (1)
  - Plasma cell myeloma [Fatal]
